FAERS Safety Report 24104723 (Version 1)
Quarter: 2024Q3

REPORT INFORMATION
  Report Type: Spontaneous
  Country: US (occurrence: US)
  Receive Date: 20240717
  Receipt Date: 20240717
  Transmission Date: 20241016
  Serious: Yes (Other)
  Sender: CLINIGEN
  Company Number: US-CLINIGEN-US-CLI-2024-010420

PATIENT
  Age: 10 Year
  Sex: Female

DRUGS (4)
  1. DEXRAZOXANE HYDROCHLORIDE [Suspect]
     Active Substance: DEXRAZOXANE HYDROCHLORIDE
     Indication: Spindle cell sarcoma
  2. IFOSFAMIDE [Suspect]
     Active Substance: IFOSFAMIDE
     Indication: Spindle cell sarcoma
  3. DOXORUBICIN [Suspect]
     Active Substance: DOXORUBICIN
     Indication: Spindle cell sarcoma
  4. MESNA [Suspect]
     Active Substance: MESNA
     Indication: Spindle cell sarcoma

REACTIONS (2)
  - Febrile neutropenia [Unknown]
  - Off label use [Unknown]
